FAERS Safety Report 10484814 (Version 1)
Quarter: 2014Q3

REPORT INFORMATION
  Report Type: Spontaneous
  Country: JP (occurrence: JP)
  Receive Date: 20140930
  Receipt Date: 20140930
  Transmission Date: 20150326
  Serious: Yes (Hospitalization, Other)
  Sender: FDA-Public Use
  Company Number: JP-PFIZER INC-2014267594

PATIENT
  Age: 78 Year
  Sex: Female

DRUGS (4)
  1. EDIROL [Concomitant]
     Active Substance: ELDECALCITOL
     Indication: OSTEOPOROSIS
     Dosage: UNK
     Route: 048
  2. AMLODIN [Suspect]
     Active Substance: AMLODIPINE BESYLATE
     Indication: HYPERTENSION
     Dosage: UNK
     Route: 048
  3. FAMOTIDINE. [Concomitant]
     Active Substance: FAMOTIDINE
     Dosage: UNK
  4. VALSARTAN. [Suspect]
     Active Substance: VALSARTAN
     Indication: HYPERTENSION
     Dosage: UNK
     Route: 048

REACTIONS (16)
  - Decreased appetite [Unknown]
  - Jaundice [Unknown]
  - Periportal oedema [Unknown]
  - Splenomegaly [Unknown]
  - Liver disorder [Unknown]
  - Hepatic enzyme increased [Recovered/Resolved]
  - Antimitochondrial antibody positive [Unknown]
  - Delirium [Recovering/Resolving]
  - Ascites [Unknown]
  - Liver scan abnormal [Unknown]
  - Hepatic enzyme decreased [Recovered/Resolved]
  - Hepatitis acute [Unknown]
  - Biliary cirrhosis primary [Unknown]
  - Cholestasis [Unknown]
  - Malaise [Unknown]
  - Depressive symptom [Unknown]

NARRATIVE: CASE EVENT DATE: 201208
